FAERS Safety Report 20969620 (Version 1)
Quarter: 2022Q2

REPORT INFORMATION
  Report Type: Spontaneous
  Country: US (occurrence: US)
  Receive Date: 20220616
  Receipt Date: 20220616
  Transmission Date: 20220721
  Serious: No
  Sender: FDA-Public Use
  Company Number: US-BoehringerIngelheim-2022-BI-176414

PATIENT
  Sex: Female

DRUGS (1)
  1. JARDIANCE [Suspect]
     Active Substance: EMPAGLIFLOZIN
     Indication: Product used for unknown indication

REACTIONS (6)
  - Surgery [Not Recovered/Not Resolved]
  - Intervertebral disc calcification [Unknown]
  - Peroneal nerve palsy [Unknown]
  - Surgery [Recovered/Resolved with Sequelae]
  - Gait disturbance [Unknown]
  - Blood glucose fluctuation [Recovering/Resolving]

NARRATIVE: CASE EVENT DATE: 20200701
